FAERS Safety Report 8561799-6 (Version None)
Quarter: 2012Q3

REPORT INFORMATION
  Report Type: 
  Country: None (occurrence: None)
  Receive Date: 20120802
  Receipt Date: 20120726
  Transmission Date: 20120928
  Serious: Yes (Hospitalization)
  Sender: FDA-Public Use
  Company Number: PHHY2012GB064430

PATIENT
  Age: 80 Year
  Sex: Male

DRUGS (7)
  1. CLOPIDOGREL [Suspect]
     Indication: ACUTE CORONARY SYNDROME
  2. RAMIPRIL [Concomitant]
     Indication: ACUTE CORONARY SYNDROME
     Dosage: 1.25 MG, BID
     Route: 048
     Dates: start: 20120709
  3. ACETYLSALICYLIC ACID SRT [Suspect]
     Indication: ACUTE CORONARY SYNDROME
     Dosage: 75 MG, QD
     Route: 048
     Dates: start: 20120707, end: 20120709
  4. BISOPROLOL FUMARATE [Concomitant]
     Indication: ACUTE CORONARY SYNDROME
     Dosage: 1.25 MG, QD
     Route: 048
     Dates: start: 20120707
  5. ENOXAPARIN [Suspect]
     Indication: ACUTE CORONARY SYNDROME
     Dosage: 75 MG, BID
     Route: 058
     Dates: start: 20120707, end: 20120709
  6. SIMVASTATIN [Concomitant]
     Indication: ACUTE CORONARY SYNDROME
     Dosage: 40 MG, QD
     Route: 048
     Dates: start: 20120707
  7. TAMSULOSIN HCL [Concomitant]
     Indication: ACUTE CORONARY SYNDROME
     Dosage: 400 UG, QD
     Route: 048
     Dates: start: 20120709

REACTIONS (2)
  - HAEMATURIA [None]
  - SPINAL CORD HAEMORRHAGE [None]
